FAERS Safety Report 9690121 (Version 2)
Quarter: 2013Q4

REPORT INFORMATION
  Report Type: Report from Study
  Country: AU (occurrence: AU)
  Receive Date: 20131115
  Receipt Date: 20131210
  Transmission Date: 20140711
  Serious: Yes (Hospitalization, Other)
  Sender: FDA-Public Use
  Company Number: PHHO2013AU014567

PATIENT
  Age: 20 Year
  Sex: Female
  Weight: 83.6 kg

DRUGS (6)
  1. MYCOPHENOLIC ACID [Suspect]
     Indication: LUPUS NEPHRITIS
     Dosage: 720 MG, UNK
     Route: 048
     Dates: start: 20120515, end: 20120809
  2. PREDNISOLONE [Concomitant]
     Indication: SYSTEMIC LUPUS ERYTHEMATOSUS
     Dosage: 20 MG
  3. HYDROXYCHLOROQUINE [Concomitant]
     Indication: SYSTEMIC LUPUS ERYTHEMATOSUS
     Dosage: 400 MG
  4. OMEPRAZOLE [Concomitant]
     Dosage: 40 MG
  5. VITAMIN D [Concomitant]
     Dosage: 1 TAB
  6. CALTRATE [Concomitant]
     Dosage: 1 TAB

REACTIONS (6)
  - Bronchopneumonia [Recovered/Resolved]
  - Normochromic normocytic anaemia [Recovered/Resolved]
  - Hypertension [Not Recovered/Not Resolved]
  - Renal impairment [Not Recovered/Not Resolved]
  - Renal failure chronic [Not Recovered/Not Resolved]
  - Nephritis [Not Recovered/Not Resolved]
